FAERS Safety Report 10233896 (Version 1)
Quarter: 2014Q2

REPORT INFORMATION
  Report Type: Spontaneous
  Country: FR (occurrence: FR)
  Receive Date: 20140612
  Receipt Date: 20140612
  Transmission Date: 20141212
  Serious: Yes (Hospitalization, Other)
  Sender: FDA-Public Use
  Company Number: FR-ASTRAZENECA-2014SE39601

PATIENT
  Age: 17682 Day
  Sex: Male
  Weight: 95 kg

DRUGS (4)
  1. XEROQUEL [Suspect]
     Route: 048
     Dates: start: 20131004
  2. XEROQUEL [Suspect]
     Route: 048
     Dates: start: 20130914, end: 20131004
  3. ZYPREXA [Concomitant]
     Dates: start: 20130914
  4. ZYPREXA [Concomitant]
     Dates: start: 20130921

REACTIONS (13)
  - Pulmonary embolism [Recovered/Resolved]
  - Deep vein thrombosis [Recovered/Resolved]
  - Pleural effusion [Unknown]
  - Pulmonary infarction [Unknown]
  - Pyrexia [Unknown]
  - Chills [Unknown]
  - Muscle spasms [Unknown]
  - Haematuria [Unknown]
  - Psychomotor retardation [Unknown]
  - Thrombocytopenia [Unknown]
  - International normalised ratio increased [Unknown]
  - C-reactive protein increased [Unknown]
  - Lymphadenopathy [Unknown]
